FAERS Safety Report 21329743 (Version 1)
Quarter: 2022Q3

REPORT INFORMATION
  Report Type: Spontaneous
  Country: US (occurrence: None)
  Receive Date: 20220913
  Receipt Date: 20220913
  Transmission Date: 20221027
  Serious: Yes (Disabling, Other)
  Sender: FDA-Public Use
  Company Number: None

PATIENT
  Age: 49 Year
  Sex: Male

DRUGS (1)
  1. TRIAMCINOLONE-MOXIFLOXACIN PF [Suspect]
     Active Substance: MOXIFLOXACIN HYDROCHLORIDE MONOHYDRATE\TRIAMCINOLONE ACETONIDE
     Dosage: OTHER FREQUENCY : ONCE;?OTHER ROUTE : INTRAVITREAL/TRANSZONULAR;?
     Route: 050

REACTIONS (1)
  - Haemorrhagic occlusive retinal vasculitis [None]
